FAERS Safety Report 4398069-6 (Version None)
Quarter: 2004Q3

REPORT INFORMATION
  Report Type: 
  Country: None (occurrence: None)
  Receive Date: 20040714
  Receipt Date: 20040714
  Transmission Date: 20050211
  Serious: Yes (Life-Threatening)
  Sender: FDA-Public Use
  Company Number: None

PATIENT
  Age: 84 Year
  Sex: Male
  Weight: 70.3075 kg

DRUGS (1)
  1. QVAR 80 [Suspect]
     Indication: ASTHMA
     Dosage: 2 PUFFS 2 X A DAY

REACTIONS (4)
  - DRUG INEFFECTIVE [None]
  - HOARSENESS [None]
  - PHARMACEUTICAL PRODUCT COMPLAINT [None]
  - RESPIRATORY TRACT CONGESTION [None]
